FAERS Safety Report 9858938 (Version 1)
Quarter: 2014Q1

REPORT INFORMATION
  Report Type: Spontaneous
  Country: US (occurrence: None)
  Receive Date: 20140129
  Receipt Date: 20140129
  Transmission Date: 20141002
  Serious: Yes (Other)
  Sender: FDA-Public Use
  Company Number: BD-2014-0003

PATIENT
  Age: 47 Year
  Sex: Male

DRUGS (13)
  1. ONDANSETRON [Suspect]
     Indication: PRODUCT USED FOR UNKNOWN INDICATION
     Dosage: 4 MG, ONE TIME DOSE?
  2. FENTANYL (FENTANYL) [Concomitant]
  3. DULOXETINE (DULOXETINE) (DULOXETINE) [Concomitant]
  4. TRAZODONE (TRAZODONE) [Concomitant]
  5. GABAPENTIN (GABAPENTIN) [Concomitant]
  6. MIDAZOLAM (MIDAZOLAM) [Concomitant]
  7. PROPOFOL (PROPOFOL) [Concomitant]
  8. SUCCINYLCHOLINE (SUXAMETHONIUM CHLORIDE) [Concomitant]
  9. DESFLURANE  (DESFLURANE) [Concomitant]
  10. VECURONIUM  (VECURONIUM ) [Concomitant]
  11. KETAMINE (KETAMINE) [Concomitant]
  12. GLYCOPYRROLATE (GLYCOPYRRONIUM) [Concomitant]
  13. NEOSTIGMINE (NEOSTIGMINE) [Concomitant]

REACTIONS (1)
  - Serotonin syndrome [None]
